FAERS Safety Report 5708645-3 (Version None)
Quarter: 2008Q2

REPORT INFORMATION
  Report Type: 
  Country: None (occurrence: None)
  Receive Date: 20080417
  Receipt Date: 20080411
  Transmission Date: 20081010
  Serious: No
  Sender: FDA-Public Use
  Company Number: US-BAXTER-2008BH003588

PATIENT
  Age: 65 Year
  Sex: Female
  Weight: 50 kg

DRUGS (5)
  1. HEPARIN SODIUM 5,000 UNITS IN DEXTROSE 5% [Suspect]
     Indication: ANTICOAGULANT THERAPY
     Route: 042
     Dates: start: 20080410, end: 20080411
  2. HEPARIN SODIUM 5,000 UNITS IN DEXTROSE 5% [Suspect]
     Route: 042
     Dates: start: 20080412
  3. PLAVIX [Concomitant]
     Indication: DRUG USE FOR UNKNOWN INDICATION
     Dosage: DOSE UNIT:UNKNOWN
     Route: 048
  4. ASPIRIN [Concomitant]
     Indication: DRUG USE FOR UNKNOWN INDICATION
     Dosage: DOSE UNIT:UNKNOWN
     Route: 048
  5. PERCOCET [Concomitant]
     Indication: PAIN
     Dosage: DOSE UNIT:UNKNOWN
     Route: 048

REACTIONS (1)
  - BLOOD PRESSURE DECREASED [None]
